FAERS Safety Report 7354929-5 (Version None)
Quarter: 2011Q1

REPORT INFORMATION
  Report Type: 
  Country: None (occurrence: None)
  Receive Date: 20110311
  Receipt Date: 20110311
  Transmission Date: 20110831
  Serious: Yes (Hospitalization)
  Sender: FDA-Public Use
  Company Number: None

PATIENT
  Age: 80 Year
  Sex: Female

DRUGS (1)
  1. NORDITROPIN [Suspect]
     Indication: HYPOPITUITARISM
     Dosage: 0.7MG QD SQ
     Route: 058

REACTIONS (11)
  - PYREXIA [None]
  - PAIN [None]
  - HYPERCAPNIA [None]
  - ADRENOCORTICAL INSUFFICIENCY ACUTE [None]
  - ATRIAL FIBRILLATION [None]
  - RESPIRATORY FAILURE [None]
  - SLEEP APNOEA SYNDROME [None]
  - CHILLS [None]
  - LETHARGY [None]
  - CHRONIC OBSTRUCTIVE PULMONARY DISEASE [None]
  - CARDIAC FAILURE CONGESTIVE [None]
